FAERS Safety Report 9221631 (Version 2)
Quarter: 2013Q2

REPORT INFORMATION
  Report Type: Spontaneous
  Country: JP (occurrence: JP)
  Receive Date: 20130410
  Receipt Date: 20130423
  Transmission Date: 20140414
  Serious: No
  Sender: FDA-Public Use
  Company Number: JP-JNJFOC-20130403510

PATIENT
  Age: 89 Year
  Sex: Female

DRUGS (3)
  1. TRAMCET [Suspect]
     Indication: PAIN
     Dosage: 1 PER 1 DAY??BEFORE BEDTIME
     Route: 048
  2. TRAMCET [Suspect]
     Indication: PAIN
     Dosage: 1 PER 1 DAY AFTER BREAKFAST
     Route: 048
     Dates: start: 201303, end: 201304
  3. TRYPTANOL [Suspect]
     Indication: PRODUCT USED FOR UNKNOWN INDICATION
     Route: 065

REACTIONS (2)
  - Dizziness [Unknown]
  - Inadequate analgesia [Unknown]
